FAERS Safety Report 7825732-4 (Version None)
Quarter: 2011Q4

REPORT INFORMATION
  Report Type: 
  Country: None (occurrence: None)
  Receive Date: 20111019
  Receipt Date: 20111013
  Transmission Date: 20120403
  Serious: Yes (Hospitalization, Other)
  Sender: FDA-Public Use
  Company Number: US-BAYER-2011-079072

PATIENT
  Age: 51 Year
  Sex: Female

DRUGS (3)
  1. AVELOX [Suspect]
     Dosage: UNK
     Route: 048
     Dates: start: 20110517, end: 20110501
  2. CORTICOSTEROIDS [Concomitant]
  3. VICODIN [Concomitant]
     Indication: PAIN

REACTIONS (4)
  - ARTHRALGIA [None]
  - HYPERSENSITIVITY [None]
  - THROAT TIGHTNESS [None]
  - TENDON RUPTURE [None]
